FAERS Safety Report 7034675-8 (Version None)
Quarter: 2010Q4

REPORT INFORMATION
  Report Type: 
  Country: None (occurrence: None)
  Receive Date: 20101008
  Receipt Date: 20100917
  Transmission Date: 20110411
  Serious: Yes (Hospitalization, Other)
  Sender: FDA-Public Use
  Company Number: PHHY2010FR65347

PATIENT
  Sex: Male

DRUGS (4)
  1. FRACTAL [Suspect]
     Dosage: 1 DF, QD
     Route: 048
     Dates: end: 20090601
  2. TAHOR [Suspect]
     Dosage: 10 MG, QD
     Route: 048
     Dates: start: 20090828, end: 20100401
  3. OGAST [Suspect]
     Dosage: 1 DF, QD
     Route: 048
     Dates: start: 20090101, end: 20090810
  4. ESOMEPRAZOLE MAGNESIUM [Suspect]
     Dosage: 1 DF, QD
     Route: 048
     Dates: start: 20090828

REACTIONS (11)
  - EOSINOPHILIA [None]
  - EOSINOPHILIC FASCIITIS [None]
  - GLOMERULONEPHRITIS [None]
  - HYPERTENSION [None]
  - HYPOALBUMINAEMIA [None]
  - MYALGIA [None]
  - NEPHROTIC SYNDROME [None]
  - OEDEMA [None]
  - POLYNEUROPATHY [None]
  - PROTEINURIA [None]
  - SKIN LESION [None]
